FAERS Safety Report 9621932 (Version 2)
Quarter: 2013Q4

REPORT INFORMATION
  Report Type: Spontaneous
  Country: US (occurrence: US)
  Receive Date: 20131015
  Receipt Date: 20131015
  Transmission Date: 20140711
  Serious: No
  Sender: FDA-Public Use
  Company Number: US-PURDUE-USA-2011-0073278

PATIENT
  Age: 52 Year
  Sex: Female

DRUGS (1)
  1. BUTRANS [Suspect]
     Indication: PAIN
     Dosage: 5 MCG/HR, DAILY
     Route: 062

REACTIONS (3)
  - Application site discolouration [Unknown]
  - Inappropriate schedule of drug administration [Unknown]
  - Application site irritation [Unknown]
